FAERS Safety Report 4853149-3 (Version None)
Quarter: 2005Q4

REPORT INFORMATION
  Report Type: 
  Country: None (occurrence: None)
  Receive Date: 20051212
  Receipt Date: 20051124
  Transmission Date: 20060501
  Serious: Yes (Disabling, Other)
  Sender: FDA-Public Use
  Company Number: DSA_27310_2005

PATIENT
  Age: 11 Month
  Sex: Male
  Weight: 5.5 kg

DRUGS (6)
  1. RENIVACE [Suspect]
     Indication: CARDIOPLEGIA
     Dosage: 0.5 MG BID PO
     Route: 048
     Dates: start: 20051009, end: 20051010
  2. MINOCYCLINE HCL [Concomitant]
  3. DOBUTREX [Concomitant]
  4. FRANDOL S [Concomitant]
  5. LASIX [Concomitant]
  6. ALDACTONE [Concomitant]

REACTIONS (7)
  - ANURIA [None]
  - BLOOD CHLORIDE DECREASED [None]
  - BLOOD POTASSIUM DECREASED [None]
  - BLOOD PRESSURE SYSTOLIC DECREASED [None]
  - BLOOD SODIUM DECREASED [None]
  - HYPOTENSION [None]
  - RENAL FAILURE ACUTE [None]
